FAERS Safety Report 10152826 (Version 1)
Quarter: 2014Q2

REPORT INFORMATION
  Report Type: Spontaneous
  Country: FR (occurrence: FR)
  Receive Date: 20140505
  Receipt Date: 20140505
  Transmission Date: 20141212
  Serious: Yes (Hospitalization)
  Sender: FDA-Public Use
  Company Number: FR-B.I. PHARMACEUTICALS,INC./RIDGEFIELD-2014-BI-19404FF

PATIENT
  Age: 68 Year
  Sex: Female

DRUGS (5)
  1. MICARDIS [Suspect]
     Indication: HYPERTENSION
     Route: 048
     Dates: end: 20140319
  2. SPIRONOLACTONE [Suspect]
     Indication: HYPERTENSION
     Dosage: 50 MG
     Route: 048
  3. VERAPAMIL (HYDROCHLORIDE OF) [Concomitant]
     Route: 065
  4. DUPHALAC [Concomitant]
     Route: 065
  5. PARIET [Concomitant]
     Route: 065

REACTIONS (1)
  - Hyponatraemia [Recovered/Resolved]
